FAERS Safety Report 19443261 (Version 2)
Quarter: 2021Q2

REPORT INFORMATION
  Report Type: Spontaneous
  Country: BE (occurrence: BE)
  Receive Date: 20210621
  Receipt Date: 20210629
  Transmission Date: 20210717
  Serious: Yes (Hospitalization, Other)
  Sender: FDA-Public Use
  Company Number: BE-PFIZER INC-2021691604

PATIENT
  Age: 62 Year
  Sex: Male

DRUGS (1)
  1. PANTOMED [PANTOPRAZOLE] [Suspect]
     Active Substance: PANTOPRAZOLE
     Dosage: UNK
     Route: 065

REACTIONS (3)
  - Drug screen false positive [Unknown]
  - Confusional state [Recovered/Resolved]
  - Loss of consciousness [Recovered/Resolved]
